FAERS Safety Report 7043357-8 (Version None)
Quarter: 2010Q3

REPORT INFORMATION
  Report Type: 
  Country: None (occurrence: None)
  Receive Date: 20100929
  Receipt Date: 20100806
  Transmission Date: 20110219
  Serious: No
  Sender: FDA-Public Use
  Company Number: US-WYE-H16811710

PATIENT
  Age: 53 Year
  Sex: Female

DRUGS (5)
  1. PRISTIQ [Suspect]
     Indication: ANXIETY
     Dosage: 75 MG 1X PER 1 DAY
     Dates: start: 20100701
  2. PRISTIQ [Suspect]
     Indication: DEPRESSION
     Dosage: 75 MG 1X PER 1 DAY
     Dates: start: 20100701
  3. ZETIA [Concomitant]
  4. XANAX [Concomitant]
  5. CYMBALTA [Concomitant]

REACTIONS (1)
  - MEDICATION RESIDUE [None]
